FAERS Safety Report 9886953 (Version 1)
Quarter: 2014Q1

REPORT INFORMATION
  Report Type: Spontaneous
  Country: SE (occurrence: SE)
  Receive Date: 20140211
  Receipt Date: 20140211
  Transmission Date: 20141002
  Serious: Yes (Other)
  Sender: FDA-Public Use
  Company Number: SE-MERCK-1402SWE003888

PATIENT
  Sex: 0

DRUGS (2)
  1. JANUVIA [Suspect]
     Indication: TYPE 1 DIABETES MELLITUS
     Route: 048
  2. INSULIN [Concomitant]

REACTIONS (2)
  - Ketoacidosis [Unknown]
  - Off label use [Unknown]
